FAERS Safety Report 5318754-9 (Version None)
Quarter: 2007Q2

REPORT INFORMATION
  Report Type: 
  Country: None (occurrence: None)
  Receive Date: 20070503
  Receipt Date: 20070503
  Transmission Date: 20071010
  Serious: No
  Sender: FDA-Public Use
  Company Number: None

PATIENT
  Sex: Female
  Weight: 66.6788 kg

DRUGS (1)
  1. FERRLECIT [Suspect]
     Indication: ANAEMIA
     Dosage: 250MG IV
     Route: 042
     Dates: start: 20061211

REACTIONS (4)
  - ASTHENIA [None]
  - HYPOAESTHESIA [None]
  - HYPOTENSION [None]
  - INFUSION RELATED REACTION [None]
